FAERS Safety Report 6215142-8 (Version None)
Quarter: 2009Q2

REPORT INFORMATION
  Report Type: 
  Country: None (occurrence: None)
  Receive Date: 20090604
  Receipt Date: 20090324
  Transmission Date: 20091009
  Serious: No
  Sender: FDA-Public Use
  Company Number: US-ASTRAZENECA-2009UW07493

PATIENT
  Age: 18 Year
  Sex: Female
  Weight: 47.6 kg

DRUGS (1)
  1. PRILOSEC DELAYED RELEASE [Suspect]
     Indication: GASTROOESOPHAGEAL REFLUX DISEASE
     Route: 048

REACTIONS (1)
  - DYSPEPSIA [None]
